FAERS Safety Report 6143234-0 (Version None)
Quarter: 2009Q2

REPORT INFORMATION
  Report Type: 
  Country: None (occurrence: None)
  Receive Date: 20090401
  Receipt Date: 20090319
  Transmission Date: 20091009
  Serious: No
  Sender: FDA-Public Use
  Company Number: 232597K09USA

PATIENT
  Age: 52 Year
  Sex: Female

DRUGS (1)
  1. REBIF [Suspect]
     Indication: MULTIPLE SCLEROSIS
     Dates: start: 20030101, end: 20070901

REACTIONS (4)
  - ANAEMIA [None]
  - DEHYDRATION [None]
  - KIDNEY INFECTION [None]
  - NEPHROLITHIASIS [None]
